FAERS Safety Report 6126600-9 (Version None)
Quarter: 2009Q1

REPORT INFORMATION
  Report Type: 
  Country: None (occurrence: None)
  Receive Date: 20090320
  Receipt Date: 20090310
  Transmission Date: 20090719
  Serious: Yes (Other)
  Sender: FDA-Public Use
  Company Number: US-PFIZER INC-2006034729

PATIENT
  Sex: Female
  Weight: 59 kg

DRUGS (7)
  1. PROVERA [Suspect]
     Indication: MENOPAUSE
     Dosage: UNK
     Route: 048
     Dates: start: 19860101, end: 19980201
  2. MEDROXYPROGESTERONE AND MEDROXYPROGESTERONE ACETATE [Suspect]
     Indication: MENOPAUSE
     Dosage: UNK
     Route: 048
     Dates: start: 19980301, end: 19980601
  3. MEDROXYPROGESTERONE AND MEDROXYPROGESTERONE ACETATE [Suspect]
     Indication: HOT FLUSH
  4. PREMARIN [Suspect]
     Indication: MENOPAUSE
     Dosage: UNK
     Route: 065
     Dates: start: 19860101, end: 19980601
  5. MEDROXYPROGESTERONE ACETATE [Suspect]
     Indication: MENOPAUSE
     Dosage: UNK
     Route: 065
     Dates: start: 19980301, end: 19980601
  6. SYNTHROID [Concomitant]
     Dosage: UNK
     Dates: start: 19800101
  7. AXID [Concomitant]

REACTIONS (1)
  - BREAST CANCER [None]
